FAERS Safety Report 4471938-4 (Version None)
Quarter: 2004Q4

REPORT INFORMATION
  Report Type: 
  Country: None (occurrence: None)
  Receive Date: 20041007
  Receipt Date: 20040922
  Transmission Date: 20050328
  Serious: Yes (Hospitalization)
  Sender: FDA-Public Use
  Company Number: 8007452

PATIENT
  Age: 80 Year
  Sex: Male

DRUGS (3)
  1. KEPPRA [Suspect]
     Indication: PARTIAL SEIZURES
     Dosage: PO
     Route: 048
     Dates: start: 20040420, end: 20040815
  2. CARBAMAZEPINE [Concomitant]
  3. ERGENYL [Concomitant]

REACTIONS (2)
  - LOCALISED SKIN REACTION [None]
  - SKIN BURNING SENSATION [None]
